FAERS Safety Report 4674549-0 (Version None)
Quarter: 2005Q2

REPORT INFORMATION
  Report Type: 
  Country: None (occurrence: None)
  Receive Date: 20050526
  Receipt Date: 20050517
  Transmission Date: 20051028
  Serious: Yes (Hospitalization)
  Sender: FDA-Public Use
  Company Number: JP-ROCHE-405177

PATIENT
  Age: 56 Year
  Sex: Male

DRUGS (5)
  1. PEGASYS [Suspect]
     Route: 058
     Dates: start: 20050305
  2. PEGASYS [Suspect]
     Route: 058
     Dates: end: 20050513
  3. TAMBOCOR [Concomitant]
  4. BAYASPIRIN [Concomitant]
     Route: 048
  5. CONIEL [Concomitant]
     Route: 048

REACTIONS (3)
  - NEUTROPHIL COUNT DECREASED [None]
  - PLATELET COUNT DECREASED [None]
  - TOXIC SKIN ERUPTION [None]
